FAERS Safety Report 9219766 (Version 2)
Quarter: 2013Q2

REPORT INFORMATION
  Report Type: Spontaneous
  Country: AU (occurrence: AU)
  Receive Date: 20130409
  Receipt Date: 20130522
  Transmission Date: 20140414
  Serious: Yes (Death, Hospitalization)
  Sender: FDA-Public Use
  Company Number: AU-B.I. PHARMACEUTICALS,INC./RIDGEFIELD-2013-AU-00420AU

PATIENT
  Age: 79 Year
  Sex: Female
  Weight: 104 kg

DRUGS (5)
  1. PRADAXA [Suspect]
     Indication: CEREBROVASCULAR ACCIDENT PROPHYLAXIS
     Dosage: 300 MG
     Dates: start: 20110630, end: 20130221
  2. PRADAXA [Suspect]
     Indication: ATRIAL FIBRILLATION
  3. DIGOXIN [Concomitant]
     Dates: start: 20110630
  4. KARVEA [Concomitant]
     Dates: start: 20100331
  5. ALDACTONE [Concomitant]
     Dates: start: 20110124

REACTIONS (9)
  - Multi-organ failure [Fatal]
  - Biliary sepsis [Unknown]
  - Abdominal pain [Unknown]
  - Respiratory failure [Unknown]
  - Cardiac failure acute [Unknown]
  - Acute pulmonary oedema [Unknown]
  - Mitral valve incompetence [Unknown]
  - Left ventricular failure [Unknown]
  - Vaginal haemorrhage [Unknown]
